FAERS Safety Report 7187106-1 (Version None)
Quarter: 2010Q4

REPORT INFORMATION
  Report Type: 
  Country: None (occurrence: None)
  Receive Date: 20101222
  Receipt Date: 20101220
  Transmission Date: 20110411
  Serious: Yes (Death, Other)
  Sender: FDA-Public Use
  Company Number: US-AMGEN-USASP2010010532

PATIENT

DRUGS (1)
  1. NPLATE [Suspect]
     Indication: IDIOPATHIC THROMBOCYTOPENIC PURPURA

REACTIONS (6)
  - BENIGN INTRACRANIAL HYPERTENSION [None]
  - BRAIN HERNIATION [None]
  - CEREBRAL INFARCTION [None]
  - CIRCULATORY COLLAPSE [None]
  - SUPERIOR SAGITTAL SINUS THROMBOSIS [None]
  - TRANSVERSE SINUS THROMBOSIS [None]
